FAERS Safety Report 20943103 (Version 1)
Quarter: 2022Q2

REPORT INFORMATION
  Report Type: Spontaneous
  Country: MX (occurrence: None)
  Receive Date: 20220610
  Receipt Date: 20220610
  Transmission Date: 20220720
  Serious: Yes (Life-Threatening, Disabling)
  Sender: FDA-Public Use
  Company Number: MX-ROCHE-3113533

PATIENT
  Sex: Male

DRUGS (11)
  1. RITUXIMAB [Suspect]
     Active Substance: RITUXIMAB
     Indication: Follicular lymphoma stage IV
     Dosage: FOR THE 1ST LINE SYSTEMIC TREATMENT (R-CHOP), PARTIAL REMISSION
     Route: 065
     Dates: start: 20201229, end: 20210226
  2. RITUXIMAB [Suspect]
     Active Substance: RITUXIMAB
     Dosage: 3 CYCLES, FOR THE 2ND LINE SYSTEMIC TREATMENT, R-CHOEP, PARTIAL REMISSION
     Route: 065
     Dates: start: 20210312, end: 20210426
  3. RITUXIMAB [Suspect]
     Active Substance: RITUXIMAB
     Dosage: 2 CYCLES FOR THE 3RD LINE SYSTEMIC TREATMENT, RITUXIMAB/BENDAMUSTINE, INTOLERABLE TOXICITY
     Route: 065
     Dates: start: 20210517, end: 20210628
  4. RITUXIMAB [Suspect]
     Active Substance: RITUXIMAB
     Dosage: 2 CYCLES FOR THE 4TH LINE SYSTEMIC TREATMENT, R-LENALIDOMIDE, PROGRESSIVE DISEASE
     Route: 065
     Dates: start: 20211101, end: 20220110
  5. OBINUTUZUMAB [Suspect]
     Active Substance: OBINUTUZUMAB
     Indication: Follicular lymphoma stage IV
     Dosage: FOR THE 6TH LINE SYSTEMIC TREATMENT, OBINUTUZUMAB, PARTIAL REMISSION
     Route: 065
     Dates: start: 20220519, end: 20220524
  6. CYCLOPHOSPHAMIDE\DOXORUBICIN\PREDNISONE\VINCRISTINE [Concomitant]
     Active Substance: CYCLOPHOSPHAMIDE\DOXORUBICIN\PREDNISONE\VINCRISTINE
     Indication: Follicular lymphoma stage IV
     Dosage: FOR THE 1ST LINE SYSTEMIC TREATMENT (R-CHOP), PARTIAL REMISSION
     Dates: start: 20201229, end: 20210226
  7. CYCLOPHOSPHAMIDE\DOXORUBICIN\ETOPOSIDE\PREDNISONE\VINCRISTINE [Concomitant]
     Active Substance: CYCLOPHOSPHAMIDE\DOXORUBICIN\ETOPOSIDE\PREDNISONE\VINCRISTINE
     Indication: Follicular lymphoma stage IV
     Dosage: 3 CYCLES, FOR THE 2ND LINE SYSTEMIC TREATMENT, R-CHOEP, PARTIAL REMISSION
     Dates: start: 20210312, end: 20210426
  8. BENDAMUSTINE [Concomitant]
     Active Substance: BENDAMUSTINE
     Indication: Follicular lymphoma stage IV
     Dosage: 2 CYCLES FOR THE 3RD LINE SYSTEMIC TREATMENT, RITUXIMAB/BENDAMUSTINE, INTOLERABLE TOXICITY
     Dates: start: 20210517, end: 20210628
  9. LENALIDOMIDE [Concomitant]
     Active Substance: LENALIDOMIDE
     Indication: Follicular lymphoma stage IV
     Dosage: 2 CYCLES FOR THE 4TH LINE SYSTEMIC TREATMENT, R-LENALIDOMIDE, PROGRESSIVE DISEASE
     Dates: start: 20211101, end: 20220110
  10. THALIDOMIDE [Concomitant]
     Active Substance: THALIDOMIDE
     Indication: Follicular lymphoma stage IV
     Dosage: FOR THE 5TH LINE SYSTEMIC TREATMENT, THALIDOMIDE/RIVAROXABAN, NO RESPONSE/STABLE DISEASE
     Dates: start: 20220204, end: 20220418
  11. RIVAROXABAN [Concomitant]
     Active Substance: RIVAROXABAN
     Indication: Follicular lymphoma stage IV
     Dosage: FOR THE 5TH LINE SYSTEMIC TREATMENT, THALIDOMIDE/RIVAROXABAN, NO RESPONSE/STABLE DISEASE
     Dates: start: 20220204, end: 20220418

REACTIONS (4)
  - Follicular lymphoma [Unknown]
  - Follicular lymphoma stage IV [Unknown]
  - Weight decreased [Unknown]
  - Night sweats [Unknown]
